FAERS Safety Report 17434836 (Version 1)
Quarter: 2020Q1

REPORT INFORMATION
  Report Type: Spontaneous
  Country: US (occurrence: US)
  Receive Date: 20200203
  Receipt Date: 20200203
  Transmission Date: 20200409
  Serious: Yes (Hospitalization)
  Sender: FDA-Public Use
  Company Number: None

PATIENT
  Age: 67 Year
  Sex: Male
  Weight: 180 kg

DRUGS (1)
  1. PIOGLITAZONE (PIOGLITAZONE HCL 15MG TAB) [Suspect]
     Active Substance: PIOGLITAZONE
     Indication: DIABETES MELLITUS
     Route: 048
     Dates: start: 20190813, end: 20200103

REACTIONS (4)
  - Oedema [None]
  - Dyspnoea [None]
  - Weight increased [None]
  - Therapy cessation [None]

NARRATIVE: CASE EVENT DATE: 20200103
